FAERS Safety Report 14183869 (Version 1)
Quarter: 2017Q4

REPORT INFORMATION
  Report Type: Spontaneous
  Country: GR (occurrence: GR)
  Receive Date: 20171113
  Receipt Date: 20171113
  Transmission Date: 20180321
  Serious: Yes (Other)
  Sender: FDA-Public Use
  Company Number: GR-TAKEDA-2017TUS023262

PATIENT
  Age: 20 Year
  Sex: Male

DRUGS (3)
  1. PREZOLON [Suspect]
     Active Substance: PREDNISOLONE
     Indication: COLITIS ULCERATIVE
     Dosage: UNK
     Route: 048
     Dates: start: 2014, end: 2016
  2. ENTYVIO [Suspect]
     Active Substance: VEDOLIZUMAB
     Indication: COLITIS ULCERATIVE
     Dosage: 300 MG, UNK
     Route: 042
  3. PREZOLON [Suspect]
     Active Substance: PREDNISOLONE
     Dosage: UNK
     Route: 042
     Dates: start: 2014, end: 2016

REACTIONS (3)
  - Decreased appetite [Not Recovered/Not Resolved]
  - Communication disorder [Not Recovered/Not Resolved]
  - Depressed mood [Not Recovered/Not Resolved]
